FAERS Safety Report 23447451 (Version 1)
Quarter: 2024Q1

REPORT INFORMATION
  Report Type: Other
  Country: CN (occurrence: CN)
  Receive Date: 20240126
  Receipt Date: 20240126
  Transmission Date: 20240410
  Serious: Yes (Hospitalization, Other)
  Sender: FDA-Public Use
  Company Number: CN-Merck Healthcare KGaA-2024004440

PATIENT
  Sex: Female
  Weight: 2 kg

DRUGS (1)
  1. EUTHYROX [Suspect]
     Active Substance: LEVOTHYROXINE SODIUM
     Indication: Graves^ disease
     Route: 064

REACTIONS (16)
  - Seizure [Unknown]
  - Premature baby [Recovered/Resolved]
  - Congenital hyperthyroidism [Recovering/Resolving]
  - Hepatosplenomegaly neonatal [Recovering/Resolving]
  - Moaning [Unknown]
  - Foaming at mouth [Unknown]
  - Asphyxia [Recovered/Resolved]
  - Cyanosis [Unknown]
  - Neonatal pulmonary hypertension [Recovering/Resolving]
  - Thrombocytopenia [Recovered/Resolved]
  - Cholelithiasis [Recovered/Resolved]
  - Cardiomegaly [Recovering/Resolving]
  - Bilirubin conjugated increased [Recovered/Resolved]
  - Blood bilirubin increased [Recovered/Resolved]
  - Transaminases increased [Recovering/Resolving]
  - Foetal exposure during pregnancy [Recovered/Resolved]
